FAERS Safety Report 22346600 (Version 2)
Quarter: 2023Q2

REPORT INFORMATION
  Report Type: Spontaneous
  Country: GB (occurrence: GB)
  Receive Date: 20230520
  Receipt Date: 20230627
  Transmission Date: 20230721
  Serious: Yes (Other)
  Sender: FDA-Public Use
  Company Number: GB-AUROBINDO-AUR-APL-2023-036672

PATIENT
  Age: 25 Year
  Sex: Female

DRUGS (1)
  1. OLANZAPINE [Suspect]
     Active Substance: OLANZAPINE
     Indication: Schizophrenia
     Dosage: 10 MILLIGRAM, ONCE A DAY AT NIGHT
     Route: 048
     Dates: start: 2021

REACTIONS (4)
  - Condition aggravated [Unknown]
  - Depression [Unknown]
  - Emotional distress [Unknown]
  - Drug ineffective [Unknown]
